FAERS Safety Report 4421282-6 (Version None)
Quarter: 2004Q3

REPORT INFORMATION
  Report Type: 
  Country: None (occurrence: None)
  Receive Date: 20040706
  Receipt Date: 20040511
  Transmission Date: 20050211
  Serious: Yes (Hospitalization)
  Sender: FDA-Public Use
  Company Number: 236128

PATIENT
  Age: 76 Year
  Sex: Female
  Weight: 54.4 kg

DRUGS (11)
  1. NOVOLOG [Suspect]
     Indication: DIABETES MELLITUS INSULIN-DEPENDENT
     Dosage: 3 0 IU, TID, SUBCUTANEOUS
     Route: 058
     Dates: start: 20040101, end: 20040322
  2. NOVOLOG [Suspect]
     Dosage: 5 2 IU, TID, SUBCUTANEOUS
     Route: 058
     Dates: start: 20040322, end: 20040323
  3. NOVOLOG [Suspect]
     Dosage: 3 IU, QD AT BEDTIME, SUBCUTANEOUS
     Route: 058
     Dates: start: 20040322, end: 20040322
  4. LANTUS [Concomitant]
  5. LIPITOR [Concomitant]
  6. CLONIDINE [Concomitant]
  7. LASIX [Concomitant]
  8. POTASSIUM (POTASSIUM) [Concomitant]
  9. PLAVIX [Concomitant]
  10. ACETYLSALICYLIC ACID SRT [Concomitant]
  11. SYNTHROID [Concomitant]

REACTIONS (2)
  - BLOOD GLUCOSE FLUCTUATION [None]
  - DIABETIC KETOACIDOSIS [None]
